FAERS Safety Report 4512181-X (Version None)
Quarter: 2004Q4

REPORT INFORMATION
  Report Type: 
  Country: None (occurrence: None)
  Receive Date: 20041129
  Receipt Date: 20041119
  Transmission Date: 20050328
  Serious: Yes (Disabling)
  Sender: FDA-Public Use
  Company Number: US-ROCHE-386761

PATIENT
  Age: 51 Year
  Sex: Female
  Weight: 75.5 kg

DRUGS (12)
  1. PEG-INTERFERON ALFA 2A (RO 25-8310) [Suspect]
     Route: 058
     Dates: start: 20040701, end: 20041014
  2. RIBAVIRIN [Suspect]
     Route: 048
     Dates: start: 20040701, end: 20041021
  3. AMITRIPTYLINE HCL [Concomitant]
  4. ESTRADIOL [Concomitant]
  5. BENTYL [Concomitant]
     Dates: end: 20040915
  6. ADDERALL 10 [Concomitant]
  7. TYLENOL [Concomitant]
  8. AMOXICILLIN [Concomitant]
     Dates: end: 20040811
  9. OXYCONTIN [Concomitant]
  10. ALDACTONE [Concomitant]
  11. OMEPRAZOLE [Concomitant]
     Dates: start: 20040525
  12. TYLENOL (CAPLET) [Concomitant]
     Dates: start: 20040701, end: 20041012

REACTIONS (1)
  - DEAFNESS [None]
